FAERS Safety Report 9330081 (Version 2)
Quarter: 2013Q2

REPORT INFORMATION
  Report Type: Spontaneous
  Country: PT (occurrence: PT)
  Receive Date: 20130604
  Receipt Date: 20130612
  Transmission Date: 20140414
  Serious: Yes (Other)
  Sender: FDA-Public Use
  Company Number: PHHY2013PT055661

PATIENT
  Age: 6 Year
  Sex: Male

DRUGS (2)
  1. PARACETAMOL [Suspect]
     Indication: HEADACHE
  2. IBUPROFEN [Concomitant]
     Indication: HEADACHE

REACTIONS (10)
  - Anaphylactic reaction [Recovered/Resolved]
  - Asthma [Recovered/Resolved]
  - Rhinitis [Recovered/Resolved]
  - Dyspnoea [Recovered/Resolved]
  - Vomiting [Recovered/Resolved]
  - Urticaria [Recovered/Resolved]
  - Cough [Recovered/Resolved]
  - Bronchospasm [Recovered/Resolved]
  - Loss of consciousness [Recovered/Resolved]
  - Angioedema [Recovered/Resolved]
